FAERS Safety Report 13613041 (Version 2)
Quarter: 2017Q2

REPORT INFORMATION
  Report Type: Spontaneous
  Country: BR (occurrence: BR)
  Receive Date: 20170605
  Receipt Date: 20170619
  Transmission Date: 20170830
  Serious: Yes (Other)
  Sender: FDA-Public Use
  Company Number: BR-SA-2017SA090772

PATIENT
  Age: 27 Year
  Sex: Female

DRUGS (4)
  1. HUMALOG [Concomitant]
     Active Substance: INSULIN LISPRO
     Indication: DIABETES MELLITUS
     Dosage: BEFORE THE MAIN MEALS
     Route: 065
  2. LANTUS [Suspect]
     Active Substance: INSULIN GLARGINE
     Indication: TYPE 1 DIABETES MELLITUS
     Route: 051
     Dates: start: 2007
  3. EUTHYROX [Concomitant]
     Active Substance: LEVOTHYROXINE SODIUM
     Indication: HYPOTHYROIDISM
     Route: 065
  4. LANTUS [Suspect]
     Active Substance: INSULIN GLARGINE
     Indication: TYPE 1 DIABETES MELLITUS
     Dosage: DOSE:21 IU IN THE MORNING; 6 IU AT NIGHT
     Route: 051
     Dates: start: 201611

REACTIONS (5)
  - Coeliac disease [Unknown]
  - Urticaria [Unknown]
  - Drug hypersensitivity [Not Recovered/Not Resolved]
  - Hyperglycaemia [Unknown]
  - Product use issue [Unknown]

NARRATIVE: CASE EVENT DATE: 201611
